FAERS Safety Report 7125891-5 (Version None)
Quarter: 2010Q4

REPORT INFORMATION
  Report Type: 
  Country: None (occurrence: None)
  Receive Date: 20101129
  Receipt Date: 20101118
  Transmission Date: 20110411
  Serious: Yes (Hospitalization)
  Sender: FDA-Public Use
  Company Number: US-SANOFI-AVENTIS-2010SA070779

PATIENT
  Age: 39 Year
  Sex: Male

DRUGS (7)
  1. LANTUS [Suspect]
     Dosage: DOSE:3800 UNIT(S)
     Route: 058
  2. LANTUS [Suspect]
     Dosage: DOSE:50 UNIT(S)
     Route: 058
  3. INSULIN LISPRO [Suspect]
     Dosage: WITH MEALS DOSE:25 UNIT(S)
     Route: 065
  4. INSULIN LISPRO [Suspect]
     Dosage: DOSE:800 UNIT(S)
     Route: 065
  5. CETIRIZINE [Concomitant]
  6. OMEPRAZOLE [Concomitant]
  7. SALBUTAMOL [Concomitant]

REACTIONS (8)
  - ASPARTATE AMINOTRANSFERASE INCREASED [None]
  - BLOOD GLUCOSE DECREASED [None]
  - BLOOD INSULIN INCREASED [None]
  - BLOOD POTASSIUM DECREASED [None]
  - CALCIUM IONISED DECREASED [None]
  - INTENTIONAL OVERDOSE [None]
  - SUICIDE ATTEMPT [None]
  - WHITE BLOOD CELL COUNT INCREASED [None]
